FAERS Safety Report 18062026 (Version 1)
Quarter: 2020Q3

REPORT INFORMATION
  Report Type: Spontaneous
  Country: CH (occurrence: CH)
  Receive Date: 20200723
  Receipt Date: 20200723
  Transmission Date: 20201103
  Serious: Yes (Hospitalization, Other)
  Sender: FDA-Public Use
  Company Number: CH-BAYER-2020-143064

PATIENT
  Age: 31 Year
  Sex: Female

DRUGS (1)
  1. MIRENA [Suspect]
     Active Substance: LEVONORGESTREL
     Dosage: 20 ?G PER DAY CONTINOUSLY
     Route: 015

REACTIONS (10)
  - Pyrexia [None]
  - Adnexa uteri mass [None]
  - Ovarian enlargement [None]
  - Chlamydial pelvic inflammatory disease [None]
  - Abdominal pain lower [None]
  - Pelvic fluid collection [None]
  - Peritonitis [None]
  - Salpingitis [None]
  - Uterine cervical pain [None]
  - Ascites [None]
